FAERS Safety Report 8406523-2 (Version None)
Quarter: 2012Q2

REPORT INFORMATION
  Report Type: 
  Country: None (occurrence: None)
  Receive Date: 20120604
  Receipt Date: 20120530
  Transmission Date: 20120825
  Serious: No
  Sender: FDA-Public Use
  Company Number: US-COVIDIEN/TYCO HEALTHCARE/MALLINCKRODT-T201202453

PATIENT
  Sex: Female
  Weight: 54.422 kg

DRUGS (8)
  1. ACETAMINOPHEN AND CODEINE PHOSPHATE [Suspect]
     Indication: POLYNEUROPATHY
  2. SOTALOL HCL [Concomitant]
     Indication: ATRIAL FIBRILLATION
     Dosage: 120 MG BID
     Route: 048
  3. VITAMIN C                          /00008001/ [Concomitant]
     Dosage: 500 MG
  4. VITAMIN E                          /00110501/ [Concomitant]
     Dosage: 400 MG
  5. VITAMIN D [Concomitant]
     Dosage: 1000 MG
  6. CALCIUM [Concomitant]
     Dosage: 1200 MG
  7. VITAMIN B-12 [Concomitant]
     Dosage: 500 MG
  8. ACETAMINOPHEN AND CODEINE PHOSPHATE [Suspect]
     Indication: MIGRAINE
     Dosage: 1 TAB Q8 HOURS PRN
     Route: 048
     Dates: start: 20060101, end: 20120301

REACTIONS (3)
  - LIP DRY [None]
  - DRY THROAT [None]
  - DRY MOUTH [None]
